FAERS Safety Report 7648032-4 (Version None)
Quarter: 2011Q3

REPORT INFORMATION
  Report Type: 
  Country: None (occurrence: None)
  Receive Date: 20110801
  Receipt Date: 20110722
  Transmission Date: 20111222
  Serious: No
  Sender: FDA-Public Use
  Company Number: US-BAYER-2011-064309

PATIENT
  Sex: Female

DRUGS (2)
  1. DROSPIRENONE AND ETHINYL ESTRADIOL [Suspect]
     Dosage: UNK
     Dates: start: 20100801, end: 20110101
  2. YAZ [Concomitant]
     Indication: CONTRACEPTION
     Dosage: UNK
     Dates: start: 20110101

REACTIONS (2)
  - WEIGHT INCREASED [None]
  - MOOD SWINGS [None]
